FAERS Safety Report 5629663-X (Version None)
Quarter: 2008Q1

REPORT INFORMATION
  Report Type: 
  Country: None (occurrence: None)
  Receive Date: 20080218
  Receipt Date: 20080212
  Transmission Date: 20080703
  Serious: Yes (Other)
  Sender: FDA-Public Use
  Company Number: B0504955A

PATIENT
  Age: 9 Year
  Sex: Male
  Weight: 44.5 kg

DRUGS (4)
  1. RELENZA [Suspect]
     Indication: INFLUENZA
     Dosage: 10MG TWICE PER DAY
     Route: 055
     Dates: start: 20080112, end: 20080116
  2. CALONAL [Concomitant]
     Route: 048
     Dates: start: 20080112
  3. KLARICID [Concomitant]
     Indication: BRONCHITIS
     Dosage: 400MG PER DAY
     Route: 048
     Dates: start: 20080112, end: 20080114
  4. MUCOSOLVAN [Concomitant]
     Indication: BRONCHITIS
     Dosage: 45MG PER DAY
     Route: 048
     Dates: start: 20080112

REACTIONS (4)
  - ABNORMAL BEHAVIOUR [None]
  - AMNESIA [None]
  - BODY TEMPERATURE INCREASED [None]
  - ENCEPHALOPATHY [None]
